FAERS Safety Report 6921414-1 (Version None)
Quarter: 2010Q3

REPORT INFORMATION
  Report Type: 
  Country: None (occurrence: None)
  Receive Date: 20100812
  Receipt Date: 20100730
  Transmission Date: 20110219
  Serious: Yes (Hospitalization, Other)
  Sender: FDA-Public Use
  Company Number: PHHY2010EC50905

PATIENT
  Age: 68 Year
  Sex: Male

DRUGS (3)
  1. DIOVAN [Suspect]
     Indication: HYPERTENSION
     Dosage: 1 DF, QD
     Route: 048
     Dates: start: 20100101, end: 20100728
  2. LEVOTHYROXINE [Concomitant]
     Dosage: 100 MG, QD
  3. HYGROTON [Concomitant]
     Dosage: UNK
     Dates: end: 20100728

REACTIONS (5)
  - ANGINA UNSTABLE [None]
  - BLOOD PRESSURE INCREASED [None]
  - CHEST PAIN [None]
  - HEADACHE [None]
  - HYPERHIDROSIS [None]
